FAERS Safety Report 16651549 (Version 1)
Quarter: 2019Q3

REPORT INFORMATION
  Report Type: Spontaneous
  Country: US (occurrence: US)
  Receive Date: 20190730
  Receipt Date: 20190730
  Transmission Date: 20191004
  Serious: Yes (Hospitalization)
  Sender: FDA-Public Use
  Company Number: None

PATIENT
  Age: 73 Year
  Sex: Female

DRUGS (12)
  1. VITA-PLUS CAP [Concomitant]
  2. SINGULAIR [Concomitant]
     Active Substance: MONTELUKAST SODIUM
  3. VITA B-12 TAB [Concomitant]
  4. LASIX [Concomitant]
     Active Substance: FUROSEMIDE
  5. SIMPONI [Suspect]
     Active Substance: GOLIMUMAB
     Indication: RHEUMATOID ARTHRITIS
     Dosage: ?          OTHER FREQUENCY:MONTHLY;?
     Route: 058
     Dates: start: 20140207
  6. BUTRANS [Concomitant]
     Active Substance: BUPRENORPHINE
  7. METHOTREXATE. [Concomitant]
     Active Substance: METHOTREXATE
  8. ZOVIRAX OINT [Concomitant]
  9. FOLIC ACID. [Concomitant]
     Active Substance: FOLIC ACID
  10. PREDNISONE. [Concomitant]
     Active Substance: PREDNISONE
  11. PROTONIX [Concomitant]
     Active Substance: PANTOPRAZOLE SODIUM
  12. CALCIUM TAB [Concomitant]

REACTIONS (1)
  - Arthritis [None]

NARRATIVE: CASE EVENT DATE: 20190729
